FAERS Safety Report 5811092-7 (Version None)
Quarter: 2008Q3

REPORT INFORMATION
  Report Type: 
  Country: None (occurrence: None)
  Receive Date: 20080711
  Receipt Date: 20080516
  Transmission Date: 20090109
  Serious: No
  Sender: FDA-Public Use
  Company Number: 2008BM000108

PATIENT
  Age: 32 Year
  Sex: Male
  Weight: 79.9 kg

DRUGS (3)
  1. KUVAN [Suspect]
     Indication: PHENYLKETONURIA
     Dosage: 20 MG/KG;QD;PO
     Route: 048
     Dates: start: 20080418, end: 20080516
  2. ULTRAM [Concomitant]
  3. XANAX [Concomitant]

REACTIONS (1)
  - MEMORY IMPAIRMENT [None]
